FAERS Safety Report 9105103 (Version 2)
Quarter: 2013Q2

REPORT INFORMATION
  Report Type: Report from Study
  Country: DE (occurrence: DE)
  Receive Date: 20130220
  Receipt Date: 20130612
  Transmission Date: 20140414
  Serious: Yes (Life-Threatening, Hospitalization)
  Sender: FDA-Public Use
  Company Number: DE-BAXTER-2013BAX005970

PATIENT
  Sex: Male

DRUGS (6)
  1. ENDOXAN 1G [Suspect]
     Indication: B-CELL LYMPHOMA
     Route: 042
     Dates: start: 20121126
  2. RITUXIMAB [Suspect]
     Indication: B-CELL LYMPHOMA
     Route: 042
     Dates: start: 20121122
  3. DOXORUBICINE [Suspect]
     Indication: B-CELL LYMPHOMA
     Route: 042
     Dates: start: 20121126
  4. VINCRISTINE [Suspect]
     Indication: B-CELL LYMPHOMA
     Route: 042
     Dates: start: 20121127
  5. PREDNISONE [Suspect]
     Indication: B-CELL LYMPHOMA
     Route: 048
     Dates: start: 20121115
  6. PEGFILGRASTIM [Suspect]
     Indication: B-CELL LYMPHOMA
     Route: 058
     Dates: start: 20121129

REACTIONS (3)
  - Respiratory failure [Recovered/Resolved]
  - Hypotension [Recovered/Resolved]
  - Pneumonia fungal [Recovered/Resolved]
